FAERS Safety Report 24169868 (Version 2)
Quarter: 2024Q4

REPORT INFORMATION
  Report Type: Spontaneous
  Country: US (occurrence: US)
  Receive Date: 20240803
  Receipt Date: 20241001
  Transmission Date: 20250114
  Serious: No
  Sender: SANOFI AVENTIS
  Company Number: US-SA-SAC20240730000603

PATIENT
  Age: 71 Year
  Sex: Female
  Weight: 67.1 kg

DRUGS (7)
  1. DUPIXENT [Suspect]
     Active Substance: DUPILUMAB
     Indication: Neurodermatitis
     Dosage: 600MG 1X
     Route: 058
     Dates: start: 20240716, end: 20240716
  2. DUPIXENT [Suspect]
     Active Substance: DUPILUMAB
     Dosage: 300 MG, QOW
     Route: 058
     Dates: start: 2024
  3. DEXMETHYLPHENIDATE HYDROCHLORIDE [Concomitant]
     Active Substance: DEXMETHYLPHENIDATE HYDROCHLORIDE
     Dosage: UNK
  4. OMEPRAZOLE [Concomitant]
     Active Substance: OMEPRAZOLE
     Dosage: UNK
  5. DULOXETINE HYDROCHLORIDE [Concomitant]
     Active Substance: DULOXETINE HYDROCHLORIDE
     Dosage: UNK
  6. METOPROLOL SUCCINATE [Concomitant]
     Active Substance: METOPROLOL SUCCINATE
     Dosage: UNK
  7. LOSARTAN POTASSIUM [Concomitant]
     Active Substance: LOSARTAN POTASSIUM
     Dosage: UNK

REACTIONS (9)
  - Skin lesion [Unknown]
  - Condition aggravated [Unknown]
  - Scratch [Unknown]
  - Skin haemorrhage [Unknown]
  - Scab [Unknown]
  - Depression [Unknown]
  - Pruritus [Unknown]
  - Injection site swelling [Recovered/Resolved]
  - Rash [Unknown]

NARRATIVE: CASE EVENT DATE: 20240101
